FAERS Safety Report 10948713 (Version 3)
Quarter: 2015Q2

REPORT INFORMATION
  Report Type: Spontaneous
  Country: JP (occurrence: None)
  Receive Date: 20150320
  Receipt Date: 20150604
  Transmission Date: 20150821
  Serious: Yes (Death, Hospitalization, Other)
  Sender: FDA-Public Use
  Company Number: 2015FE00890

PATIENT
  Age: 78 Year
  Sex: Male

DRUGS (7)
  1. ONEALFA [Concomitant]
     Active Substance: ALFACALCIDOL
  2. DOCETAXEL (DOCETAXEL) [Suspect]
     Active Substance: DOCETAXEL
     Indication: PRODUCT USED FOR UNKNOWN INDICATION
     Route: 041
     Dates: start: 201305
  3. RANMARK (DENOSUMAB) [Concomitant]
     Active Substance: DENOSUMAB
  4. LASIX [Concomitant]
     Active Substance: FUROSEMIDE
  5. GONAX (DEGARELIX) POWDER AND SOLVENT FOR SOLUTION FOR INJECTION, 80MG [Suspect]
     Active Substance: DEGARELIX
     Indication: PROSTATE CANCER
     Route: 058
     Dates: start: 201306, end: 20150226
  6. DEXAMETHASONE (DEXAMETHASONE) [Suspect]
     Active Substance: DEXAMETHASONE
     Indication: PRODUCT USED FOR UNKNOWN INDICATION
     Route: 048
     Dates: start: 2013
  7. GASTER [Concomitant]
     Active Substance: FAMOTIDINE

REACTIONS (6)
  - Streptococcal infection [None]
  - Oedema [None]
  - Skin disorder [None]
  - Injection site cellulitis [None]
  - Injection site necrosis [None]
  - Streptococcus test positive [None]

NARRATIVE: CASE EVENT DATE: 20150228
